FAERS Safety Report 16804656 (Version 1)
Quarter: 2019Q3

REPORT INFORMATION
  Report Type: Spontaneous
  Country: US (occurrence: US)
  Receive Date: 20190913
  Receipt Date: 20190913
  Transmission Date: 20191005
  Serious: Yes (Hospitalization)
  Sender: FDA-Public Use
  Company Number: US-DRREDDYS-USA/USA/19/0114218

PATIENT
  Age: 71 Year
  Sex: Male

DRUGS (2)
  1. QUETIAPINE FUMARATE TABLETS [Suspect]
     Active Substance: QUETIAPINE FUMARATE
     Indication: MENTAL STATUS CHANGES
  2. VALPROIC ACID. [Suspect]
     Active Substance: VALPROIC ACID
     Indication: MENTAL DISORDER

REACTIONS (1)
  - Catatonia [Recovering/Resolving]
